FAERS Safety Report 5335207-2 (Version None)
Quarter: 2007Q2

REPORT INFORMATION
  Report Type: 
  Country: None (occurrence: None)
  Receive Date: 20070525
  Receipt Date: 20070515
  Transmission Date: 20071010
  Serious: Yes (Hospitalization)
  Sender: FDA-Public Use
  Company Number: DE-PFIZER INC-2006040031

PATIENT
  Sex: Male
  Weight: 64 kg

DRUGS (13)
  1. SU-011,248 [Suspect]
     Indication: METASTATIC RENAL CELL CARCINOMA
     Route: 048
     Dates: start: 20060228, end: 20060320
  2. ALNA [Concomitant]
     Route: 048
     Dates: start: 20060531
  3. LISINOPRIL [Concomitant]
     Route: 048
  4. BAYOTENSIN [Concomitant]
     Route: 048
  5. FORTECORTIN [Concomitant]
     Route: 048
  6. PANTOZOL [Concomitant]
     Route: 048
  7. CLEXANE [Concomitant]
     Route: 048
  8. TRAMADOL HCL [Concomitant]
     Route: 048
  9. VITAMIN B COMPLEX CAP [Concomitant]
     Route: 048
  10. DRONABINOL [Concomitant]
     Route: 048
  11. BEPANTHEN ^ROCHE^ [Concomitant]
     Route: 061
  12. MAALOXAN [Concomitant]
     Route: 048
  13. NOVALGIN [Concomitant]
     Route: 048

REACTIONS (3)
  - HYPERTENSION [None]
  - SOMNOLENCE [None]
  - VOMITING [None]
